FAERS Safety Report 14569986 (Version 1)
Quarter: 2018Q1

REPORT INFORMATION
  Report Type: Spontaneous
  Country: US (occurrence: US)
  Receive Date: 20180225
  Receipt Date: 20180225
  Transmission Date: 20180509
  Serious: No
  Sender: FDA-Public Use
  Company Number: US-JNJFOC-20180207351

PATIENT
  Age: 83 Year
  Sex: Female
  Weight: 61.69 kg

DRUGS (1)
  1. TYLENOL EXTRA STRENGTH [Suspect]
     Active Substance: ACETAMINOPHEN
     Indication: SLEEP DISORDER THERAPY
     Route: 048

REACTIONS (3)
  - Therapeutic response unexpected [Unknown]
  - Drug administration error [Unknown]
  - Product use in unapproved indication [Unknown]
